FAERS Safety Report 4965351-0 (Version None)
Quarter: 2006Q2

REPORT INFORMATION
  Report Type: 
  Country: None (occurrence: None)
  Receive Date: 20060406
  Receipt Date: 20050706
  Transmission Date: 20061013
  Serious: Yes (Other)
  Sender: FDA-Public Use
  Company Number: US-MERCK-0507USA01105

PATIENT
  Age: 62 Year
  Sex: Male
  Weight: 127 kg

DRUGS (1)
  1. VIOXX [Suspect]
     Indication: ARTHRALGIA
     Route: 048
     Dates: start: 20000101, end: 20040930

REACTIONS (3)
  - ARTERIAL OCCLUSIVE DISEASE [None]
  - CONDUCTION DISORDER [None]
  - MYOCARDIAL INFARCTION [None]
